FAERS Safety Report 17189503 (Version 3)
Quarter: 2022Q4

REPORT INFORMATION
  Report Type: Spontaneous
  Country: GB (occurrence: GB)
  Receive Date: 20191223
  Receipt Date: 20221213
  Transmission Date: 20230113
  Serious: Yes (Hospitalization)
  Sender: FDA-Public Use
  Company Number: GB-BIOGEN-2017BI00377579

PATIENT
  Sex: Male

DRUGS (3)
  1. DALFAMPRIDINE [Suspect]
     Active Substance: DALFAMPRIDINE
     Indication: Gait disturbance
     Route: 050
     Dates: start: 20150831
  2. DALFAMPRIDINE [Suspect]
     Active Substance: DALFAMPRIDINE
     Route: 050
     Dates: start: 2015
  3. VITAMIN D [Concomitant]
     Active Substance: VITAMIN D NOS
     Indication: Product used for unknown indication
     Route: 050

REACTIONS (11)
  - Urethral stenosis [Unknown]
  - Pain [Unknown]
  - Micturition disorder [Unknown]
  - Gait disturbance [Unknown]
  - Intentional underdose [Unknown]
  - Urinary tract infection [Recovered/Resolved]
  - Asthenia [Unknown]
  - Dyspnoea [Unknown]
  - Balance disorder [Unknown]
  - Malaise [Unknown]
  - Intentional product misuse [Unknown]

NARRATIVE: CASE EVENT DATE: 20150101
